FAERS Safety Report 11281336 (Version 3)
Quarter: 2015Q3

REPORT INFORMATION
  Report Type: Spontaneous
  Country: US (occurrence: US)
  Receive Date: 20150717
  Receipt Date: 20150807
  Transmission Date: 20151125
  Serious: Yes (Other)
  Sender: FDA-Public Use
  Company Number: US-ASTRAZENECA-2008BM03644

PATIENT
  Age: 784 Month
  Sex: Male
  Weight: 166 kg

DRUGS (36)
  1. BYETTA [Suspect]
     Active Substance: EXENATIDE
     Route: 058
  2. ACTOS [Concomitant]
     Active Substance: PIOGLITAZONE HYDROCHLORIDE
     Dates: start: 20061103
  3. COLACE [Concomitant]
     Active Substance: DOCUSATE SODIUM
     Route: 048
     Dates: start: 20061103
  4. BYETTA [Suspect]
     Active Substance: EXENATIDE
     Dosage: 10MCG/0.04 ML
     Route: 065
     Dates: start: 20110118
  5. BYETTA [Suspect]
     Active Substance: EXENATIDE
     Dosage: 10MCG/0.04 ML
     Route: 065
     Dates: start: 20131209
  6. ADVIL [Concomitant]
     Active Substance: IBUPROFEN
     Route: 048
     Dates: start: 20080801
  7. BYETTA [Suspect]
     Active Substance: EXENATIDE
     Route: 058
  8. NORVASC [Concomitant]
     Active Substance: AMLODIPINE BESYLATE
     Route: 065
     Dates: start: 20101124
  9. CYTOMEL [Concomitant]
     Active Substance: LIOTHYRONINE SODIUM
     Route: 065
     Dates: start: 20120419
  10. GLUCOPHAGE [Concomitant]
     Active Substance: METFORMIN HYDROCHLORIDE
     Dates: start: 20061104
  11. ASPIRIN. [Concomitant]
     Active Substance: ASPIRIN
     Dates: start: 20061103
  12. LIPITOR [Concomitant]
     Active Substance: ATORVASTATIN CALCIUM
     Route: 048
     Dates: start: 20061103
  13. NITROGLYCERIN. [Concomitant]
     Active Substance: NITROGLYCERIN
     Dates: start: 20050920
  14. JANUMET [Concomitant]
     Active Substance: METFORMIN HYDROCHLORIDE\SITAGLIPTIN PHOSPHATE
     Dosage: 50-1000MG, EVERY SIX HOURS
     Route: 065
     Dates: start: 20110118
  15. SIMVASTATIN. [Concomitant]
     Active Substance: SIMVASTATIN
     Route: 065
     Dates: start: 20110120
  16. TOPROL XL [Concomitant]
     Active Substance: METOPROLOL SUCCINATE
     Route: 065
     Dates: start: 20110407
  17. AMBIEN [Concomitant]
     Active Substance: ZOLPIDEM TARTRATE
     Route: 048
     Dates: start: 20061103
  18. VITAMIN C [Concomitant]
     Active Substance: ASCORBIC ACID
     Route: 048
     Dates: start: 20120418
  19. VITAMIN E [Concomitant]
     Active Substance: .ALPHA.-TOCOPHEROL
     Route: 048
     Dates: start: 20120418
  20. CEPHALEXIN. [Concomitant]
     Active Substance: CEPHALEXIN
     Route: 065
     Dates: start: 20120419
  21. FUROSEMIDE. [Concomitant]
     Active Substance: FUROSEMIDE
     Route: 065
     Dates: start: 20141022
  22. PRAVASTATIN [Concomitant]
     Active Substance: PRAVASTATIN\PRAVASTATIN SODIUM
     Route: 048
     Dates: start: 20120418
  23. BYETTA [Suspect]
     Active Substance: EXENATIDE
     Dosage: 10MCG/0.04 ML, TWO TIMES A DAY
     Route: 065
     Dates: start: 20080717
  24. VIAGRA [Concomitant]
     Active Substance: SILDENAFIL CITRATE
     Route: 065
     Dates: start: 20141006
  25. FISH OIL [Concomitant]
     Active Substance: FISH OIL
     Route: 048
     Dates: start: 20120418
  26. LISINOPRIL. [Concomitant]
     Active Substance: LISINOPRIL
     Route: 065
     Dates: start: 20110407
  27. CIALIS [Concomitant]
     Active Substance: TADALAFIL
     Route: 065
     Dates: start: 20131211
  28. XARELTO [Concomitant]
     Active Substance: RIVAROXABAN
     Route: 065
     Dates: start: 20140326
  29. PLAVIX [Concomitant]
     Active Substance: CLOPIDOGREL BISULFATE
     Dates: start: 20061103
  30. XANAX [Concomitant]
     Active Substance: ALPRAZOLAM
     Route: 048
     Dates: start: 20061103
  31. MILK OF MAGNESIA [Concomitant]
     Active Substance: MAGNESIUM HYDROXIDE
     Route: 048
     Dates: start: 20061103
  32. VITAMIN D3 [Concomitant]
     Active Substance: CHOLECALCIFEROL
     Route: 048
     Dates: start: 20120418
  33. BYETTA [Suspect]
     Active Substance: EXENATIDE
     Dosage: 10MCG/0.04 ML, TWO TIMES A DAY
     Route: 065
     Dates: start: 20120418
  34. TEMAZEPAM. [Concomitant]
     Active Substance: TEMAZEPAM
     Dates: start: 20061103
  35. MORPHINE [Concomitant]
     Active Substance: MORPHINE
     Dosage: 2-4 MG, EVERY TWO HOURS
     Dates: start: 20061103
  36. ALBUTEROL. [Concomitant]
     Active Substance: ALBUTEROL
     Route: 065

REACTIONS (5)
  - Weight decreased [Unknown]
  - Papillary thyroid cancer [Unknown]
  - Goitre [Unknown]
  - Autoimmune thyroiditis [Unknown]
  - Post procedural hypothyroidism [Unknown]

NARRATIVE: CASE EVENT DATE: 201204
